FAERS Safety Report 16879381 (Version 2)
Quarter: 2019Q4

REPORT INFORMATION
  Report Type: Spontaneous
  Country: NL (occurrence: NL)
  Receive Date: 20191003
  Receipt Date: 20191030
  Transmission Date: 20200122
  Serious: Yes (Hospitalization, Other)
  Sender: FDA-Public Use
  Company Number: NL-BAXTER-2019BAX019015

PATIENT
  Age: 71 Year
  Sex: Male

DRUGS (3)
  1. EXTRANEAL [Suspect]
     Active Substance: CALCIUM CHLORIDE\ICODEXTRIN\MAGNESIUM CHLORIDE\SODIUM CHLORIDE\SODIUM LACTATE
     Indication: PERITONEAL DIALYSIS
     Route: 033
  2. PHYSIONEAL 40 GLUCOSE 2,27% M/V / 22,7 MG/ML, OPLOSSING VOOR PERITONEA [Suspect]
     Active Substance: CALCIUM\DEXTROSE\MAGNESIUM\SODIUM BICARBONATE\SODIUM CHLORIDE\SODIUM LACTATE
     Indication: PERITONEAL DIALYSIS
     Route: 033
  3. PHYSIONEAL 40 GLUCOSE 1.36% W/V / 13.6MG/ML OPLOSSING VOOR PERITONEALE [Suspect]
     Active Substance: CALCIUM CL\DEXTROSE\MAGNESIUM CL\SODIUM BICAR\SODIUM CL\SODIUM LACT
     Indication: PERITONEAL DIALYSIS
     Route: 033

REACTIONS (3)
  - Escherichia bacteraemia [Unknown]
  - Peritonitis bacterial [Recovered/Resolved]
  - Haemodynamic instability [Unknown]

NARRATIVE: CASE EVENT DATE: 20190910
